FAERS Safety Report 8400289-8 (Version None)
Quarter: 2012Q2

REPORT INFORMATION
  Report Type: 
  Country: None (occurrence: None)
  Receive Date: 20120531
  Receipt Date: 20120525
  Transmission Date: 20120825
  Serious: Yes (Hospitalization, Other)
  Sender: FDA-Public Use
  Company Number: US-AMGEN-USASP2011032407

PATIENT
  Age: 77 Year
  Sex: Female

DRUGS (3)
  1. PROLIA [Suspect]
     Indication: OSTEOPOROSIS POSTMENOPAUSAL
     Dosage: 60 MG, ONE TIME DOSE
     Route: 058
     Dates: start: 20110120, end: 20110120
  2. PROLIA [Suspect]
     Indication: OSTEOPOROSIS
  3. PROPYLENE GLYCOL [Concomitant]
     Indication: DRY EYE
     Dosage: UNK
     Route: 061

REACTIONS (12)
  - FEELING ABNORMAL [None]
  - NECK PAIN [None]
  - MUSCULOSKELETAL PAIN [None]
  - BACK PAIN [None]
  - ANXIETY [None]
  - HEART RATE IRREGULAR [None]
  - PANIC ATTACK [None]
  - MYALGIA [None]
  - NEUROPATHY PERIPHERAL [None]
  - MALAISE [None]
  - PAIN IN EXTREMITY [None]
  - CARDIAC DISORDER [None]
